FAERS Safety Report 23567454 (Version 2)
Quarter: 2024Q1

REPORT INFORMATION
  Report Type: Spontaneous
  Country: US (occurrence: US)
  Receive Date: 20240226
  Receipt Date: 20240318
  Transmission Date: 20240410
  Serious: No
  Sender: FDA-Public Use
  Company Number: US-Calliditas-2024CAL00258

PATIENT
  Age: 65 Year
  Sex: Female

DRUGS (3)
  1. TARPEYO [Suspect]
     Active Substance: BUDESONIDE
     Indication: IgA nephropathy
     Dosage: 16 MG (4 MG CAPSULES) ONCE DAILY
     Route: 048
     Dates: start: 20240131, end: 202402
  2. TRAZODONE [Concomitant]
     Active Substance: TRAZODONE HYDROCHLORIDE
  3. POTASSIUM [Concomitant]
     Active Substance: POTASSIUM

REACTIONS (5)
  - Nausea [Unknown]
  - Weight increased [Not Recovered/Not Resolved]
  - Dyspnoea exertional [Unknown]
  - Muscle spasms [Unknown]
  - Therapy cessation [Not Recovered/Not Resolved]

NARRATIVE: CASE EVENT DATE: 20240101
